FAERS Safety Report 25477869 (Version 1)
Quarter: 2025Q2

REPORT INFORMATION
  Report Type: Spontaneous
  Country: US (occurrence: None)
  Receive Date: 20250624
  Receipt Date: 20250624
  Transmission Date: 20250716
  Serious: No
  Sender: FDA-CTU
  Company Number: None

PATIENT
  Age: 8 Year
  Sex: Male

DRUGS (4)
  1. AMINOCAPROIC ACID [Suspect]
     Active Substance: AMINOCAPROIC ACID
     Indication: Factor VIII deficiency
     Route: 048
  2. BLUNT FILTER NEEDL 18GX1-1/2 [Concomitant]
  3. HEMLIBRA [Suspect]
     Active Substance: EMICIZUMAB-KXWH
  4. ELOCTATE [Suspect]
     Active Substance: EFMOROCTOCOG ALFA

REACTIONS (2)
  - Haemorrhage [None]
  - Head injury [None]

NARRATIVE: CASE EVENT DATE: 20250618
